FAERS Safety Report 10181683 (Version 1)
Quarter: 2014Q2

REPORT INFORMATION
  Report Type: Spontaneous
  Country: US (occurrence: US)
  Receive Date: 20140519
  Receipt Date: 20140519
  Transmission Date: 20141212
  Serious: No
  Sender: FDA-Public Use
  Company Number: US-PFIZER INC-2014134222

PATIENT
  Age: 58 Year
  Sex: Female
  Weight: 95.24 kg

DRUGS (12)
  1. CHANTIX [Suspect]
     Indication: SMOKING CESSATION THERAPY
     Dosage: 0.5 MG, DAILY
     Dates: start: 20140321
  2. CHANTIX [Suspect]
     Dosage: 0.5 MG, 2X/DAY
     Dates: start: 20140324, end: 20140327
  3. ATORVASTATIN CALCIUM [Concomitant]
     Indication: BLOOD CHOLESTEROL INCREASED
     Dosage: 40 MG, DAILY
  4. LANSOPRAZOLE [Concomitant]
     Dosage: 30 MG, DAILY
  5. METOPROLOL [Concomitant]
     Indication: HYPERTENSION
     Dosage: 50 MG, DAILY
  6. CETRIZINE [Concomitant]
     Indication: HYPERSENSITIVITY
     Dosage: 10 MG, DAILY
  7. GABAPENTIN [Concomitant]
     Dosage: 100 MG, 3X/DAY
  8. ALPRAZOLAM [Concomitant]
     Indication: SLEEP DISORDER
     Dosage: 0.5 MG, DAILY
  9. ZOLPIDEM [Concomitant]
     Dosage: 10 MG, AS NEEDED
  10. HYDROCHLOROTHIAZIDE [Concomitant]
     Dosage: 12.5 MG, DAILY
  11. HYDROCODONE W/ACETAMINOPHEN [Concomitant]
     Dosage: 5/325MG AS NEEDED
  12. ESTRADIOL [Concomitant]
     Dosage: 1 MG, DAILY

REACTIONS (2)
  - Skin irritation [Recovered/Resolved]
  - Rash macular [Recovered/Resolved]
